FAERS Safety Report 18071466 (Version 1)
Quarter: 2020Q3

REPORT INFORMATION
  Report Type: Spontaneous
  Country: US (occurrence: US)
  Receive Date: 20200725
  Receipt Date: 20200725
  Transmission Date: 20201103
  Serious: No
  Sender: FDA-Public Use
  Company Number: None

PATIENT

DRUGS (1)
  1. BAHAMA BO S OCEAN FRESH HAND SANITIZER [Suspect]
     Active Substance: ALCOHOL

REACTIONS (1)
  - Product physical consistency issue [None]
